FAERS Safety Report 5772463-0 (Version None)
Quarter: 2008Q2

REPORT INFORMATION
  Report Type: 
  Country: None (occurrence: None)
  Receive Date: 20080613
  Receipt Date: 20080605
  Transmission Date: 20081010
  Serious: Yes (Life-Threatening, Hospitalization)
  Sender: FDA-Public Use
  Company Number: DE-ROCHE-557055

PATIENT
  Sex: Female
  Weight: 72 kg

DRUGS (9)
  1. BONIVA [Suspect]
     Indication: OSTEOPOROSIS
     Route: 042
  2. TILIDIN COMP [Concomitant]
     Indication: PAIN
     Dosage: DRUG NAME TILIDIN COMP 50/8
  3. CALCIGEN [Concomitant]
     Indication: OSTEOPOROSIS
     Dosage: DRUG NAME REPORTED AS CALCIGEN KAUTABLETTE
  4. CALCIGEN [Concomitant]
     Dosage: DRUG NAME REPORTED AS CALCIGEN KAUTABLETTE
  5. MELLARIL [Concomitant]
     Indication: DEPRESSION
     Dosage: DRUG NAME REPORTED AS MELLERIL 25
  6. METOHEXAL [Concomitant]
     Indication: SINUS TACHYCARDIA
     Dosage: DRUG NAME METOHEXAL SUCCINAT
  7. MADOPAR [Concomitant]
  8. MADOPAR [Concomitant]
  9. NEXIUM [Concomitant]
     Indication: ILL-DEFINED DISORDER

REACTIONS (1)
  - HYPERSENSITIVITY [None]
